FAERS Safety Report 23735843 (Version 1)
Quarter: 2024Q2

REPORT INFORMATION
  Report Type: Other
  Country: PT (occurrence: PT)
  Receive Date: 20240412
  Receipt Date: 20240412
  Transmission Date: 20240715
  Serious: Yes (Hospitalization)
  Sender: FDA-Public Use
  Company Number: PT-Knight Therapeutics (USA) Inc.-2155499

PATIENT
  Age: 47 Year
  Sex: Male

DRUGS (19)
  1. IMPAVIDO [Suspect]
     Active Substance: MILTEFOSINE
     Indication: Visceral leishmaniasis
     Route: 048
     Dates: start: 202007, end: 202007
  2. AMPHOTERICIN B [Concomitant]
     Active Substance: AMPHOTERICIN B
     Route: 048
     Dates: start: 202007
  3. combined antiretroviral [Concomitant]
  4. AMPHOTERICIN B [Concomitant]
     Active Substance: AMPHOTERICIN B
     Route: 048
     Dates: start: 201502, end: 201601
  5. MILTEFOSINE [Suspect]
     Active Substance: MILTEFOSINE
     Route: 048
     Dates: start: 201502, end: 201601
  6. AMPHOTERICIN B [Concomitant]
     Active Substance: AMPHOTERICIN B
     Route: 048
     Dates: start: 201604
  7. MILTEFOSINE [Suspect]
     Active Substance: MILTEFOSINE
     Route: 048
     Dates: start: 201604
  8. AMPHOTERICIN B [Concomitant]
     Active Substance: AMPHOTERICIN B
     Route: 048
     Dates: start: 201606
  9. MILTEFOSINE [Suspect]
     Active Substance: MILTEFOSINE
     Route: 048
     Dates: start: 201606
  10. AMPHOTERICIN B [Concomitant]
     Active Substance: AMPHOTERICIN B
     Route: 048
     Dates: start: 201705
  11. MILTEFOSINE [Suspect]
     Active Substance: MILTEFOSINE
     Route: 048
     Dates: start: 201705
  12. AMPHOTERICIN B [Concomitant]
     Active Substance: AMPHOTERICIN B
     Route: 048
     Dates: start: 2017
  13. MILTEFOSINE [Suspect]
     Active Substance: MILTEFOSINE
     Route: 048
     Dates: start: 2017
  14. AMPHOTERICIN B [Concomitant]
     Active Substance: AMPHOTERICIN B
     Route: 048
     Dates: start: 201905
  15. MILTEFOSINE [Suspect]
     Active Substance: MILTEFOSINE
     Route: 048
     Dates: start: 201905
  16. AMPHOTERICIN B [Concomitant]
     Active Substance: AMPHOTERICIN B
     Route: 048
     Dates: start: 201906
  17. MILTEFOSINE [Suspect]
     Active Substance: MILTEFOSINE
     Route: 048
     Dates: start: 201906
  18. AMPHOTERICIN B [Concomitant]
     Active Substance: AMPHOTERICIN B
     Route: 048
     Dates: start: 202001
  19. MILTEFOSINE [Suspect]
     Active Substance: MILTEFOSINE
     Dates: start: 202001

REACTIONS (8)
  - Disease recurrence [Not Recovered/Not Resolved]
  - Off label use [Unknown]
  - Off label use [Unknown]
  - Off label use [Unknown]
  - Therapy cessation [Unknown]
  - Drug resistance [Unknown]
  - Pancytopenia [Not Recovered/Not Resolved]
  - Drug ineffective for unapproved indication [Not Recovered/Not Resolved]
